FAERS Safety Report 17052218 (Version 1)
Quarter: 2019Q4

REPORT INFORMATION
  Report Type: Spontaneous
  Country: US (occurrence: US)
  Receive Date: 20191120
  Receipt Date: 20191120
  Transmission Date: 20200122
  Serious: No
  Sender: FDA-Public Use
  Company Number: US-ELI_LILLY_AND_COMPANY-US201911005817

PATIENT
  Age: 59 Year
  Sex: Male

DRUGS (3)
  1. HUMALOG [Suspect]
     Active Substance: INSULIN LISPRO
     Indication: TYPE 2 DIABETES MELLITUS
     Dosage: 60 U, DAILY (SLIDING SCALE)
     Route: 065
     Dates: start: 201907
  2. HUMALOG [Suspect]
     Active Substance: INSULIN LISPRO
     Dosage: 60 U, DAILY (SLIDING SCALE)
     Route: 065
  3. TOUJEO MAX [Concomitant]
     Active Substance: INSULIN GLARGINE
     Indication: DIABETES MELLITUS
     Dosage: 150 U

REACTIONS (1)
  - Blood glucose increased [Unknown]
